FAERS Safety Report 5056467-1 (Version None)
Quarter: 2006Q3

REPORT INFORMATION
  Report Type: 
  Country: None (occurrence: None)
  Receive Date: 20060720
  Receipt Date: 20060607
  Transmission Date: 20061208
  Serious: Yes (Hospitalization)
  Sender: FDA-Public Use
  Company Number: US-JNJFOC-20060404170

PATIENT
  Age: 74 Year
  Sex: Female

DRUGS (8)
  1. DURAGESIC-100 [Suspect]
     Route: 062
  2. DURAGESIC-100 [Suspect]
     Route: 062
  3. DURAGESIC-100 [Suspect]
     Route: 062
  4. DURAGESIC-100 [Suspect]
     Indication: PAIN
     Route: 062
  5. MORPHINE [Concomitant]
     Route: 048
  6. MORPHINE [Concomitant]
     Route: 048
  7. LORAZEPAM [Concomitant]
     Route: 048
  8. MIRALAX [Concomitant]
     Dosage: 1 CAPFULL DAILY, ORAL
     Route: 048

REACTIONS (6)
  - ASTHENIA [None]
  - ATRIOVENTRICULAR BLOCK THIRD DEGREE [None]
  - CHEST PAIN [None]
  - DYSPNOEA [None]
  - INFLUENZA LIKE ILLNESS [None]
  - SINUS BRADYCARDIA [None]
